FAERS Safety Report 6439051-4 (Version None)
Quarter: 2009Q4

REPORT INFORMATION
  Report Type: 
  Country: None (occurrence: None)
  Receive Date: 20091112
  Receipt Date: 20080729
  Transmission Date: 20100525
  Serious: Yes (Hospitalization)
  Sender: FDA-Public Use
  Company Number: 200813906

PATIENT
  Age: 51 Year
  Sex: Female
  Weight: 94.3482 kg

DRUGS (3)
  1. PRIVIGEN [Suspect]
     Indication: MYASTHENIA GRAVIS
     Dosage: 0.4 G/KG B.W. DAILY IV
     Route: 042
     Dates: start: 20080701, end: 20080701
  2. PRIVIGEN [Suspect]
     Dosage: IV
     Route: 042
     Dates: start: 20080701, end: 20080701
  3. PRIVIGEN [Suspect]
     Dosage: IV
     Route: 042
     Dates: start: 20080701, end: 20080701

REACTIONS (3)
  - MENINGITIS ASEPTIC [None]
  - MIGRAINE [None]
  - PYREXIA [None]
